FAERS Safety Report 9892087 (Version 1)
Quarter: 2014Q1

REPORT INFORMATION
  Report Type: Report from Study
  Country: MX (occurrence: MX)
  Receive Date: 20140212
  Receipt Date: 20140212
  Transmission Date: 20141002
  Serious: Yes (Other)
  Sender: FDA-Public Use
  Company Number: PHHY2014MX016747

PATIENT
  Age: 80 Year
  Sex: Female

DRUGS (4)
  1. EXELON PATCH [Suspect]
     Indication: CEREBROVASCULAR DISORDER
     Dosage: 4.6 MG, DAILY
     Route: 062
     Dates: start: 201310, end: 201311
  2. EXELON PATCH [Suspect]
     Indication: OFF LABEL USE
  3. TEGRETOL [Suspect]
     Indication: CEREBROVASCULAR DISORDER
     Dosage: 300 MG, UNK
  4. OMEPRAZOLE [Concomitant]
     Dosage: 3 UKN, UNK

REACTIONS (15)
  - Hepatic fibrosis [Not Recovered/Not Resolved]
  - Injury [Not Recovered/Not Resolved]
  - Cerebrovascular disorder [Not Recovered/Not Resolved]
  - Condition aggravated [Not Recovered/Not Resolved]
  - Poisoning [Not Recovered/Not Resolved]
  - Neurotoxicity [Not Recovered/Not Resolved]
  - Renal disorder [Not Recovered/Not Resolved]
  - Hepatic function abnormal [Not Recovered/Not Resolved]
  - Abnormal behaviour [Not Recovered/Not Resolved]
  - Disorientation [Not Recovered/Not Resolved]
  - Swelling [Not Recovered/Not Resolved]
  - Amnesia [Not Recovered/Not Resolved]
  - Bowel movement irregularity [Not Recovered/Not Resolved]
  - Fluid retention [Not Recovered/Not Resolved]
  - Malaise [Unknown]
